FAERS Safety Report 5134616-4 (Version None)
Quarter: 2006Q4

REPORT INFORMATION
  Report Type: 
  Country: None (occurrence: None)
  Receive Date: 20061025
  Receipt Date: 20061023
  Transmission Date: 20070319
  Serious: Yes (Death, Life-Threatening, Disabling, Other)
  Sender: FDA-Public Use
  Company Number: US-GLAXOSMITHKLINE-A0624556A

PATIENT
  Sex: Male

DRUGS (3)
  1. COREG [Suspect]
     Indication: HYPERTENSION
     Dosage: 25MG SINGLE DOSE
     Route: 048
  2. ACE INHIBITOR [Concomitant]
  3. NITROGLYCERIN [Concomitant]
     Route: 042

REACTIONS (2)
  - DEATH [None]
  - DRUG ADMINISTRATION ERROR [None]
